FAERS Safety Report 5503069-6 (Version None)
Quarter: 2007Q4

REPORT INFORMATION
  Report Type: 
  Country: None (occurrence: None)
  Receive Date: 20071031
  Receipt Date: 20071022
  Transmission Date: 20080405
  Serious: Yes (Death, Life-Threatening, Other)
  Sender: FDA-Public Use
  Company Number: FR-BRISTOL-MYERS SQUIBB COMPANY-13961123

PATIENT
  Age: 50 Year
  Sex: Female

DRUGS (8)
  1. ENDOXAN [Suspect]
     Indication: BURKITT'S LYMPHOMA
     Route: 042
     Dates: start: 20070919, end: 20070919
  2. METHOTREXATE [Suspect]
     Indication: BURKITT'S LYMPHOMA
     Dosage: 5900MG INTRAVENOUS THERAPY DATES 17SEP2007-17SEP2007
     Route: 042
     Dates: start: 20070917, end: 20070918
  3. DOXORUBICIN HCL [Suspect]
     Indication: BURKITT'S LYMPHOMA
     Route: 042
     Dates: start: 20070918, end: 20070918
  4. ONCOVIN [Suspect]
     Indication: BURKITT'S LYMPHOMA
     Route: 042
     Dates: start: 20070917, end: 20070917
  5. RANITIDINE HCL [Concomitant]
     Route: 042
     Dates: start: 20070917, end: 20070920
  6. ZELITREX [Concomitant]
     Route: 048
     Dates: start: 20070916, end: 20070920
  7. IMODIUM [Concomitant]
     Route: 048
     Dates: start: 20070920, end: 20070924
  8. TAZOCILLINE [Concomitant]
     Dates: start: 20070924, end: 20071003

REACTIONS (6)
  - BONE MARROW FAILURE [None]
  - LUNG DISORDER [None]
  - OVERDOSE [None]
  - RENAL FAILURE ACUTE [None]
  - SEPTIC SHOCK [None]
  - TUMOUR LYSIS SYNDROME [None]
